FAERS Safety Report 4870835-X (Version None)
Quarter: 2006Q1

REPORT INFORMATION
  Report Type: 
  Country: None (occurrence: None)
  Receive Date: 20060103
  Receipt Date: 20051129
  Transmission Date: 20060701
  Serious: Yes (Disabling)
  Sender: FDA-Public Use
  Company Number: US-MERCK-0511USA04586

PATIENT
  Age: 63 Year
  Sex: Female
  Weight: 132 kg

DRUGS (13)
  1. VIOXX [Suspect]
     Indication: ARTHRALGIA
     Route: 048
  2. MAGNESIUM OXIDE [Concomitant]
     Route: 065
  3. AVANDIA [Concomitant]
     Route: 065
  4. DEMADEX [Concomitant]
     Route: 065
  5. BUMETANIDE [Concomitant]
     Route: 065
  6. VITAMIN B COMPLEX [Concomitant]
     Route: 065
  7. HUMULIN [Concomitant]
     Route: 065
  8. ALTACE [Concomitant]
     Route: 065
  9. METHOCARBAMOL [Concomitant]
     Route: 065
  10. ULTRAM [Concomitant]
     Route: 065
  11. PREDNISOLONE ACETATE [Concomitant]
     Route: 065
  12. MAGONATE [Concomitant]
     Route: 065
  13. GLUCOTROL [Concomitant]
     Route: 065

REACTIONS (2)
  - CEREBROVASCULAR ACCIDENT [None]
  - EYE DISORDER [None]
